FAERS Safety Report 21440345 (Version 1)
Quarter: 2022Q4

REPORT INFORMATION
  Report Type: Spontaneous
  Country: US (occurrence: US)
  Receive Date: 20221011
  Receipt Date: 20221011
  Transmission Date: 20230113
  Serious: Yes (Other)
  Sender: FDA-Public Use
  Company Number: US-AMNEAL PHARMACEUTICALS-2021-AMRX-05280

PATIENT
  Sex: Male

DRUGS (2)
  1. LIORESAL [Suspect]
     Active Substance: BACLOFEN
     Indication: Muscle spasticity
     Dosage: 100 ?G, \DAY
     Route: 037
     Dates: end: 2021
  2. LIORESAL [Suspect]
     Active Substance: BACLOFEN
     Dosage: 225.1 ?G, \DAY
     Route: 037
     Dates: start: 2021, end: 20211117

REACTIONS (3)
  - Muscle spasticity [Recovered/Resolved]
  - Implant site infection [Not Recovered/Not Resolved]
  - Complication associated with device [Recovered/Resolved]

NARRATIVE: CASE EVENT DATE: 20210101
